FAERS Safety Report 9074910 (Version 3)
Quarter: 2014Q1

REPORT INFORMATION
  Report Type: Report from Study
  Country: DE (occurrence: DE)
  Receive Date: 20130129
  Receipt Date: 20140106
  Transmission Date: 20141002
  Serious: Yes (Hospitalization, Other)
  Sender: FDA-Public Use
  Company Number: DE-BRISTOL-MYERS SQUIBB COMPANY-17307257

PATIENT
  Age: 60 Year
  Sex: Female
  Weight: 63 kg

DRUGS (4)
  1. ORENCIA [Suspect]
     Indication: RHEUMATOID ARTHRITIS
     Route: 042
     Dates: start: 201202
  2. METHOTREXATE [Suspect]
     Indication: RHEUMATOID ARTHRITIS
     Dosage: ALSO TOOK ORAL THERAPY
     Route: 058
     Dates: start: 201105
  3. PREDNISOLONE [Suspect]
     Indication: RHEUMATOID ARTHRITIS
     Dosage: 7.5-0-2.5 MG,FEB12:REDUCED TO 5 MG
     Route: 048
  4. AMITRIPTYLINE [Concomitant]
     Dates: start: 201206

REACTIONS (4)
  - Cataract [Recovered/Resolved]
  - Eye infection viral [Recovered/Resolved]
  - Bronchitis [Recovered/Resolved]
  - Joint effusion [Unknown]
